FAERS Safety Report 7551183-6 (Version None)
Quarter: 2011Q2

REPORT INFORMATION
  Report Type: 
  Country: None (occurrence: None)
  Receive Date: 20110616
  Receipt Date: 20110602
  Transmission Date: 20111010
  Serious: Yes (Other)
  Sender: FDA-Public Use
  Company Number: PHHY2011SI25006

PATIENT
  Age: 81 Year
  Sex: Male

DRUGS (8)
  1. ASPIRIN [Concomitant]
     Dosage: 100 MG, UNK
  2. ALISKIREN [Suspect]
     Dates: start: 20101012
  3. MIRCERA [Concomitant]
     Dosage: 50 UMOL/L, UNK
  4. LESCOL [Concomitant]
  5. APROVEL [Concomitant]
     Indication: HYPERTENSION
     Dosage: 300 L, UNK
  6. LERCAPRESS [Concomitant]
     Indication: HYPERTENSION
     Dosage: 5 MG, UNK
  7. CARDULAR [Concomitant]
     Indication: HYPERTENSION
     Dosage: 8 MG, UNK
  8. ALLOPURINOL [Concomitant]

REACTIONS (3)
  - BLOOD GLUCOSE ABNORMAL [None]
  - BLOOD CREATININE INCREASED [None]
  - HYPERTENSION [None]
